FAERS Safety Report 4317152-4 (Version None)
Quarter: 2004Q1

REPORT INFORMATION
  Report Type: 
  Country: None (occurrence: None)
  Receive Date: 20040312
  Receipt Date: 20040226
  Transmission Date: 20041129
  Serious: Yes (Other)
  Sender: FDA-Public Use
  Company Number: PHNR2004AU00726

PATIENT
  Age: 74 Year
  Sex: Female
  Weight: 74.027 kg

DRUGS (2)
  1. VISUDYNE [Suspect]
     Indication: MACULAR DEGENERATION
     Dates: start: 20030901, end: 20030901
  2. VISUDYNE [Suspect]
     Indication: MACULAR DEGENERATION
     Dosage: 15 MG ONCE IV
     Route: 042
     Dates: start: 20040226, end: 20040226

REACTIONS (4)
  - ARTHRALGIA [None]
  - BACK PAIN [None]
  - CORONARY ARTERY OCCLUSION [None]
  - PAIN IN EXTREMITY [None]
